FAERS Safety Report 12286557 (Version 2)
Quarter: 2016Q4

REPORT INFORMATION
  Report Type: Spontaneous
  Country: US (occurrence: US)
  Receive Date: 20160420
  Receipt Date: 20161102
  Transmission Date: 20170207
  Serious: Yes (Other)
  Sender: FDA-Public Use
  Company Number: US-VALIDUS PHARMACEUTICALS LLC-US-2016VAL001087

PATIENT

DRUGS (2)
  1. ELIQUIS [Suspect]
     Active Substance: APIXABAN
     Indication: PRODUCT USED FOR UNKNOWN INDICATION
     Dosage: UNK
  2. METOPROLOL. [Suspect]
     Active Substance: METOPROLOL
     Indication: ATRIAL FIBRILLATION
     Dosage: UNK
     Dates: end: 201601

REACTIONS (7)
  - Swelling face [Unknown]
  - Rash [Not Recovered/Not Resolved]
  - Dyspnoea [Unknown]
  - Atrial fibrillation [Unknown]
  - Chapped lips [Not Recovered/Not Resolved]
  - Lip swelling [Not Recovered/Not Resolved]
  - Rash pustular [Not Recovered/Not Resolved]

NARRATIVE: CASE EVENT DATE: 20150821
